FAERS Safety Report 9771815 (Version 2)
Quarter: 2013Q4

REPORT INFORMATION
  Report Type: Report from Study
  Country: DE (occurrence: DE)
  Receive Date: 20131219
  Receipt Date: 20131219
  Transmission Date: 20140711
  Serious: Yes (Hospitalization)
  Sender: FDA-Public Use
  Company Number: DE-ROCHE-1274777

PATIENT
  Age: 68 Year
  Sex: Female
  Weight: 64 kg

DRUGS (11)
  1. OBINUTUZUMAB [Suspect]
     Indication: B-CELL LYMPHOMA
     Dosage: DATE OF MOST RECENT DOSE (250 ML AT CONCENTRATION OF 4 MG/ML) PRIOR TO AE ONSET : 01/JUL/2013.
     Route: 042
     Dates: start: 20130408
  2. BENDAMUSTINE [Suspect]
     Indication: B-CELL LYMPHOMA
     Dosage: DATE OF MOST RECENT DOSE (150 MG) PRIOR TO AE ONSET : 02/JUL/2013.
     Route: 042
     Dates: start: 20130408
  3. GRANISETRON [Concomitant]
     Route: 065
     Dates: start: 20130408
  4. TAVEGIL [Concomitant]
     Indication: PREMEDICATION
     Route: 065
     Dates: start: 20130408
  5. PARACETAMOL [Concomitant]
     Indication: PREMEDICATION
     Route: 065
     Dates: start: 20130408
  6. RANITIDIN [Concomitant]
     Indication: PREMEDICATION
     Route: 065
     Dates: start: 20130408
  7. ATACAND [Concomitant]
     Indication: ESSENTIAL HYPERTENSION
  8. VALTREX [Concomitant]
     Indication: GENITAL HERPES
     Route: 065
     Dates: start: 20100301
  9. PANTOPRAZOL [Concomitant]
     Indication: PROPHYLAXIS AGAINST GASTROINTESTINAL ULCER
     Route: 065
     Dates: start: 20130408
  10. COTRIM FORTE [Concomitant]
     Indication: INFECTION PROPHYLAXIS
     Route: 065
     Dates: start: 20130413
  11. SODIUM CHLORIDE [Concomitant]
     Route: 065
     Dates: start: 20120701, end: 20130702

REACTIONS (2)
  - Sinus bradycardia [Recovered/Resolved]
  - Circulatory collapse [Recovered/Resolved]
